FAERS Safety Report 13347225 (Version 2)
Quarter: 2017Q2

REPORT INFORMATION
  Report Type: Spontaneous
  Country: JP (occurrence: JP)
  Receive Date: 20170317
  Receipt Date: 20170407
  Transmission Date: 20170830
  Serious: No
  Sender: FDA-Public Use
  Company Number: JP-GALDERMA-JP17001627

PATIENT
  Age: 9 Year
  Sex: Female
  Weight: 45 kg

DRUGS (2)
  1. EPIDUO [Suspect]
     Active Substance: ADAPALENE\BENZOYL PEROXIDE
     Indication: ACNE
     Dosage: 0.1%/2.5%
     Route: 061
     Dates: start: 20170228, end: 20170303
  2. ZEBIAX [Concomitant]
     Indication: ACNE
     Route: 061

REACTIONS (2)
  - Application site swelling [Recovering/Resolving]
  - Eyelid oedema [Recovering/Resolving]

NARRATIVE: CASE EVENT DATE: 20170303
